FAERS Safety Report 17282468 (Version 4)
Quarter: 2020Q3

REPORT INFORMATION
  Report Type: Report from Study
  Country: CA (occurrence: CA)
  Receive Date: 20200117
  Receipt Date: 20200807
  Transmission Date: 20201102
  Serious: Yes (Hospitalization, Other)
  Sender: FDA-Public Use
  Company Number: CA-AMGEN-CANSL2019161299

PATIENT
  Age: 79 Year
  Sex: Female
  Weight: 43.99 kg

DRUGS (7)
  1. TUMS [Concomitant]
     Active Substance: CALCIUM CARBONATE
  2. RAMIPRIL. [Concomitant]
     Active Substance: RAMIPRIL
  3. WARFARIN [Concomitant]
     Active Substance: WARFARIN
  4. PROLIA [Suspect]
     Active Substance: DENOSUMAB
     Indication: OSTEOPOROSIS POSTMENOPAUSAL
     Dosage: 60 MILLIGRAM PER MILLILITRE, Q6MO
     Route: 065
     Dates: start: 20151006
  5. VITAMIN D [COLECALCIFEROL] [Concomitant]
     Active Substance: CHOLECALCIFEROL
  6. HYDROCODONE [Concomitant]
     Active Substance: HYDROCODONE
  7. AMIODARONE [Concomitant]
     Active Substance: AMIODARONE

REACTIONS (10)
  - Sensory disturbance [Unknown]
  - Influenza [Unknown]
  - Osteonecrosis of jaw [Recovered/Resolved]
  - Localised infection [Unknown]
  - Tooth infection [Unknown]
  - Internal haemorrhage [Unknown]
  - Weight decreased [Unknown]
  - Gingival disorder [Unknown]
  - Osteomyelitis [Unknown]
  - Post procedural infection [Unknown]

NARRATIVE: CASE EVENT DATE: 2018
